FAERS Safety Report 14309506 (Version 8)
Quarter: 2022Q1

REPORT INFORMATION
  Report Type: Spontaneous
  Country: ES (occurrence: ES)
  Receive Date: 20171220
  Receipt Date: 20220309
  Transmission Date: 20220423
  Serious: Yes (Hospitalization)
  Sender: FDA-Public Use
  Company Number: None

PATIENT
  Age: 78 Year
  Sex: Male

DRUGS (5)
  1. QUETIAPINE [Interacting]
     Active Substance: QUETIAPINE
     Indication: Psychomotor hyperactivity
     Dosage: 25 MG, QD (CUMULATIVE DOSE 125 MG)
     Route: 048
     Dates: start: 20170928, end: 20171003
  2. ERTAPENEM [Interacting]
     Active Substance: ERTAPENEM
     Indication: Urinary tract infection
     Dosage: 1 G, QD (CUMULATIVE DOSE 3G)
     Route: 042
     Dates: start: 20170929, end: 20171002
  3. ERTAPENEM [Interacting]
     Active Substance: ERTAPENEM
     Indication: Pyrexia
  4. MEROPENEM [Interacting]
     Active Substance: MEROPENEM
     Indication: Urinary tract infection
     Dosage: 3 G, QD
     Route: 042
     Dates: start: 20171002, end: 20171010
  5. MEROPENEM [Interacting]
     Active Substance: MEROPENEM
     Indication: Pyrexia

REACTIONS (2)
  - Encephalopathy [Recovered/Resolved]
  - Product use in unapproved indication [Unknown]

NARRATIVE: CASE EVENT DATE: 20171002
